FAERS Safety Report 6831881-X (Version None)
Quarter: 2010Q3

REPORT INFORMATION
  Report Type: 
  Country: None (occurrence: None)
  Receive Date: 20100712
  Receipt Date: 20100706
  Transmission Date: 20110219
  Serious: Yes (Death, Hospitalization)
  Sender: FDA-Public Use
  Company Number: US-PFIZER INC-A023519

PATIENT
  Age: 46 Year
  Sex: Female
  Weight: 52 kg

DRUGS (3)
  1. SERTRALINE HCL [Suspect]
     Route: 065
  2. PROPAFENONE HCL [Suspect]
     Route: 065
  3. ETHANOL [Suspect]
     Indication: PRODUCT USED FOR UNKNOWN INDICATION
     Route: 065

REACTIONS (5)
  - CARDIAC ARREST [None]
  - COMA [None]
  - GRAND MAL CONVULSION [None]
  - INTENTIONAL OVERDOSE [None]
  - SUICIDE ATTEMPT [None]
